FAERS Safety Report 13470942 (Version 1)
Quarter: 2017Q2

REPORT INFORMATION
  Report Type: Spontaneous
  Country: US (occurrence: US)
  Receive Date: 20170424
  Receipt Date: 20170424
  Transmission Date: 20170830
  Serious: Yes (Other)
  Sender: FDA-Public Use
  Company Number: US-TEVA-717408USA

PATIENT
  Age: 64 Year
  Sex: Female
  Weight: 50 kg

DRUGS (1)
  1. LOSARTAN. [Suspect]
     Active Substance: LOSARTAN
     Indication: HYPERTENSION
     Dosage: SPLIT AND TAKE ONE IN MORNING AND ONE AT NIGHT

REACTIONS (9)
  - Hypertension [Recovered/Resolved]
  - Dysgeusia [Unknown]
  - Heart rate irregular [Unknown]
  - Nausea [Unknown]
  - Aphonia [Unknown]
  - Wrong technique in product usage process [Unknown]
  - Laryngitis [Unknown]
  - Viral upper respiratory tract infection [Unknown]
  - Balance disorder [Recovered/Resolved]

NARRATIVE: CASE EVENT DATE: 20161109
